FAERS Safety Report 18757400 (Version 1)
Quarter: 2021Q1

REPORT INFORMATION
  Report Type: Spontaneous
  Country: SE (occurrence: SE)
  Receive Date: 20210119
  Receipt Date: 20210119
  Transmission Date: 20210419
  Serious: Yes (Hospitalization)
  Sender: FDA-Public Use
  Company Number: SE-TEVA-2021-SE-1869335

PATIENT
  Age: 79 Year
  Sex: Male

DRUGS (15)
  1. METOPROLOL. [Concomitant]
     Active Substance: METOPROLOL
     Dosage: 100 MG
     Dates: start: 20171128
  2. PREDNISOLONE. [Suspect]
     Active Substance: PREDNISOLONE
     Indication: GOUT
     Route: 065
     Dates: start: 202012, end: 202012
  3. TROMBYL 75 MG TABLETT [Concomitant]
     Active Substance: ASPIRIN
     Dosage: 75 MG
     Dates: start: 20180108
  4. EMOVAT 0,05 % KRAM [Concomitant]
     Dosage: 2 TIMES A DAY FOR 2 WEEKS, THEN 2 TIMES / WEEK
     Dates: start: 20171127
  5. ENALAPRIL [Concomitant]
     Active Substance: ENALAPRIL
     Dosage: 2.5 MG
     Dates: start: 20180107
  6. DERMOVAT 0,05 % KRAM [Concomitant]
     Dosage: 1 APPL IN THE EVENING FOR 2 WEEKS, THEN 2?EVENINGS / WEEK.
     Dates: start: 20200331
  7. PROTOPIC 0,1 % SALVA [Concomitant]
     Dates: start: 20201027
  8. LATANOPROST. [Concomitant]
     Active Substance: LATANOPROST
     Dosage: 1 DROP IN BOTH EYES
     Dates: start: 20190716
  9. FURIX 40 MG TABLETT [Concomitant]
     Dosage: 80 MG
     Dates: start: 20180108
  10. HUMALOG MIX50 KWIKPEN 100 E/ML INJEKTIONSVATSKA, SUSPENSION I F RFYLLD [Concomitant]
     Dosage: 60 E + 20 E + 58 E
     Route: 058
     Dates: start: 20200213
  11. BETNOVAT 0,1 % KRAM [Concomitant]
     Dosage: 2 TIMES DAILY FOR 2 WEEKS, THEN 2?TIMES / WEEK.
     Dates: start: 20200611
  12. PROPYLESS 200 MG/G KUTAN EMULSION [Concomitant]
     Dosage: CAN BE LUBRICATED SEVERAL TIMES A DAY IF NEEDED
     Dates: start: 20181130
  13. AZARGA 10 MG/ML + 5 MG/ML OGONDROPPAR, SUSPENSION [Concomitant]
     Dosage: 1 DROP 2 TIMES DAILY, UNIT DOSE: 2 GTT
     Dates: start: 20200310
  14. SIMVASTATIN. [Concomitant]
     Active Substance: SIMVASTATIN
     Dosage: 40 MG
     Dates: start: 20180107
  15. CANODERM 5 % KUTAN EMULSION [Concomitant]
     Dates: start: 20200703

REACTIONS (2)
  - Hyperkalaemia [Recovering/Resolving]
  - Hyperglycaemia [Recovering/Resolving]

NARRATIVE: CASE EVENT DATE: 20201210
